FAERS Safety Report 18104603 (Version 1)
Quarter: 2020Q3

REPORT INFORMATION
  Report Type: Spontaneous
  Country: US (occurrence: US)
  Receive Date: 20200803
  Receipt Date: 20200803
  Transmission Date: 20201103
  Serious: Yes (Other)
  Sender: FDA-Public Use
  Company Number: None

PATIENT
  Age: 79 Year
  Sex: Female
  Weight: 64.2 kg

DRUGS (4)
  1. HEPARIN [Concomitant]
     Active Substance: HEPARIN SODIUM
     Dates: start: 20200801
  2. REMDESIVIR. [Suspect]
     Active Substance: REMDESIVIR
     Indication: COVID-19
     Route: 042
     Dates: start: 20200801, end: 20200803
  3. DEXAMETHASONE. [Concomitant]
     Active Substance: DEXAMETHASONE
     Dates: start: 20200801
  4. ASPIRIN. [Concomitant]
     Active Substance: ASPIRIN
     Dates: start: 20200801

REACTIONS (1)
  - Alanine aminotransferase increased [None]

NARRATIVE: CASE EVENT DATE: 20200803
